FAERS Safety Report 5600151-X (Version None)
Quarter: 2008Q1

REPORT INFORMATION
  Report Type: 
  Country: None (occurrence: None)
  Receive Date: 20080123
  Receipt Date: 20080114
  Transmission Date: 20080703
  Serious: Yes (Other)
  Sender: FDA-Public Use
  Company Number: ZA-ASTRAZENECA-2008SE00309

PATIENT
  Age: 36 Year
  Sex: Female

DRUGS (6)
  1. SEROQUEL [Suspect]
     Indication: DEPRESSION
     Route: 048
     Dates: start: 20070701
  2. SEROQUEL [Suspect]
     Indication: ANXIETY
     Route: 048
     Dates: start: 20070701
  3. SEROQUEL [Suspect]
     Route: 048
     Dates: end: 20071101
  4. SEROQUEL [Suspect]
     Route: 048
     Dates: end: 20071101
  5. XANOR [Concomitant]
     Indication: AGITATION
     Dates: end: 20071101
  6. XANOR [Concomitant]
     Indication: INSOMNIA
     Dates: end: 20071101

REACTIONS (4)
  - BLOOD PROLACTIN INCREASED [None]
  - HYPOTHYROIDISM [None]
  - OVERDOSE [None]
  - WEIGHT INCREASED [None]
